FAERS Safety Report 13878572 (Version 1)
Quarter: 2017Q3

REPORT INFORMATION
  Report Type: Spontaneous
  Country: US (occurrence: US)
  Receive Date: 20170817
  Receipt Date: 20170817
  Transmission Date: 20171127
  Serious: No
  Sender: FDA-Public Use
  Company Number: US-ROCHE-502417

PATIENT
  Sex: Male

DRUGS (2)
  1. PEG-INTERFERON ALFA 2A [Suspect]
     Active Substance: PEGINTERFERON ALFA-2A
     Indication: PRODUCT USED FOR UNKNOWN INDICATION
     Dosage: STOPPED AT GESTATION WEEK 4.
     Route: 065
     Dates: start: 20060313, end: 20060411
  2. COPEGUS [Suspect]
     Active Substance: RIBAVIRIN
     Indication: PRODUCT USED FOR UNKNOWN INDICATION
     Dosage: STOPPED AT GESTATION WEEK 4.
     Route: 065
     Dates: start: 20060313, end: 20060411

REACTIONS (2)
  - Live birth [Unknown]
  - No adverse event [Unknown]
